FAERS Safety Report 9985607 (Version 2)
Quarter: 2014Q1

REPORT INFORMATION
  Report Type: Report from Study
  Country: JP (occurrence: JP)
  Receive Date: 20140307
  Receipt Date: 20140307
  Transmission Date: 20141002
  Serious: Yes (Hospitalization)
  Sender: FDA-Public Use
  Company Number: JP-SA-RENA-1001974

PATIENT
  Age: 50 Year
  Sex: Male
  Weight: 64 kg

DRUGS (9)
  1. SEVELAMER HYDROCHLORIDE [Suspect]
     Indication: HYPERPHOSPHATAEMIA
     Dosage: 2000 MG, 8 TABLETS TID
     Route: 048
     Dates: start: 20130722, end: 20130728
  2. KALIMATE [Concomitant]
     Dosage: 25 G, QD
     Route: 048
  3. AMLODIPINE [Concomitant]
     Dosage: 5 MG, BID
     Route: 048
  4. DIOVAN [Concomitant]
     Dosage: 80 MG, BID
     Route: 048
  5. OLMETEC [Concomitant]
     Dosage: 20 MG, BID
     Route: 048
  6. LANSOPRAZOLE [Concomitant]
     Dosage: 15 MG, QD
     Route: 048
  7. CARTOL [Concomitant]
     Dosage: 0.5 MCG, QD
     Route: 048
  8. NESP [Concomitant]
     Dosage: 40 MCG, 1X/W
     Route: 042
  9. ZOLPIDEM TARTRATE [Concomitant]
     Dosage: 10 MG, QD
     Route: 048

REACTIONS (8)
  - Diverticulitis [Recovered/Resolved]
  - Abdominal pain [Recovered/Resolved]
  - Pyrexia [Recovered/Resolved]
  - Face oedema [Recovered/Resolved]
  - Vomiting [Recovered/Resolved]
  - Constipation [Recovered/Resolved]
  - Blood pressure increased [Unknown]
  - Diarrhoea [Unknown]
